FAERS Safety Report 4395565-2 (Version None)
Quarter: 2004Q3

REPORT INFORMATION
  Report Type: 
  Country: None (occurrence: None)
  Receive Date: 20040709
  Receipt Date: 20040625
  Transmission Date: 20050211
  Serious: Yes (Other)
  Sender: FDA-Public Use
  Company Number: US-JNJFOC-20040608083

PATIENT
  Age: 73 Year
  Sex: Male

DRUGS (10)
  1. REMICADE [Suspect]
     Indication: RHEUMATOID ARTHRITIS
     Dosage: INTRAVENOUS
     Route: 042
     Dates: start: 20000119, end: 20030901
  2. CALTRATE (CALCIUM CARBONATE) [Concomitant]
  3. FOLIC ACID [Concomitant]
  4. FOSAMAX [Concomitant]
  5. METHOTREXATE [Concomitant]
  6. PREDNISONE TAB [Concomitant]
  7. SULFASALAZINE (SULFASALAZINE)TABLETS [Concomitant]
  8. VIOXX [Concomitant]
  9. CENTRUM SILVER (CENTRUM SILVER) [Concomitant]
  10. IRON SUPPLEMENT (IRON) [Concomitant]

REACTIONS (2)
  - POSTOPERATIVE INFECTION [None]
  - UPPER LIMB FRACTURE [None]
